FAERS Safety Report 13678570 (Version 2)
Quarter: 2017Q2

REPORT INFORMATION
  Report Type: Spontaneous
  Country: VN (occurrence: VN)
  Receive Date: 20170622
  Receipt Date: 20170628
  Transmission Date: 20170830
  Serious: No
  Sender: FDA-Public Use
  Company Number: VN-PFIZER INC-2017269423

PATIENT
  Age: 40 Year
  Sex: Male

DRUGS (7)
  1. DIMEDROL [Concomitant]
     Active Substance: DIPHENHYDRAMINE
     Dosage: UNK UNK, SINGLE
     Route: 030
     Dates: start: 20170617, end: 20170617
  2. PARACETAMOL [Concomitant]
     Active Substance: ACETAMINOPHEN
     Dosage: UNK UNK, SINGLE
     Route: 054
     Dates: start: 20170617, end: 20170617
  3. GENTAMICIN. [Concomitant]
     Active Substance: GENTAMICIN
     Dosage: 80 MG, SINGLE
     Route: 030
     Dates: start: 20170617, end: 20170617
  4. VITAMIN B12 [Concomitant]
     Active Substance: CYANOCOBALAMIN
     Dosage: UNK UNK, SINGLE
     Route: 030
     Dates: start: 20170617, end: 20170617
  5. SOLU-MEDROL [Suspect]
     Active Substance: METHYLPREDNISOLONE SODIUM SUCCINATE
     Indication: INFLUENZA
     Dosage: UNK
     Dates: start: 201706, end: 201706
  6. VITAMIN B1 [Concomitant]
     Active Substance: THIAMINE HYDROCHLORIDE
     Dosage: UNK UNK, SINGLE
     Route: 030
     Dates: start: 20170617, end: 20170617
  7. SOLU-MEDROL [Suspect]
     Active Substance: METHYLPREDNISOLONE SODIUM SUCCINATE
     Dosage: 40 MG, SINGLE
     Route: 042
     Dates: start: 20170617, end: 20170617

REACTIONS (2)
  - Chills [Recovered/Resolved]
  - Pyrexia [Recovered/Resolved]

NARRATIVE: CASE EVENT DATE: 20170617
